FAERS Safety Report 21533765 (Version 1)
Quarter: 2022Q4

REPORT INFORMATION
  Report Type: Spontaneous
  Country: US (occurrence: US)
  Receive Date: 20221101
  Receipt Date: 20221101
  Transmission Date: 20230113
  Serious: Yes (Other)
  Sender: FDA-Public Use
  Company Number: US-SA-SAC20221028001429

PATIENT
  Age: 25 Year
  Sex: Female

DRUGS (4)
  1. ZANTAC [Suspect]
     Active Substance: RANITIDINE HYDROCHLORIDE
     Indication: Hyperchlorhydria
     Dosage: 25 MG QD
     Dates: start: 200401
  2. ZANTAC [Suspect]
     Active Substance: RANITIDINE HYDROCHLORIDE
     Indication: Dyspepsia
     Dosage: 75 MG QD
  3. ZANTAC [Suspect]
     Active Substance: RANITIDINE HYDROCHLORIDE
     Indication: Abdominal discomfort
     Dosage: 150 MG QD
  4. ZANTAC [Suspect]
     Active Substance: RANITIDINE HYDROCHLORIDE
     Dosage: UNK, QD
     Dates: end: 202002

REACTIONS (7)
  - Gastrointestinal carcinoma [Unknown]
  - Gastric cancer stage I [Unknown]
  - Small intestine carcinoma stage I [Unknown]
  - Neuroendocrine carcinoma [Not Recovered/Not Resolved]
  - Disease progression [Not Recovered/Not Resolved]
  - Pancreatic carcinoma stage III [Unknown]
  - Hepatic cancer stage III [Unknown]

NARRATIVE: CASE EVENT DATE: 20070601
